FAERS Safety Report 16351217 (Version 1)
Quarter: 2019Q2

REPORT INFORMATION
  Report Type: Spontaneous
  Country: US (occurrence: US)
  Receive Date: 20190524
  Receipt Date: 20190524
  Transmission Date: 20190711
  Serious: No
  Sender: FDA-Public Use
  Company Number: US-ZYDUS-020083

PATIENT
  Sex: Female

DRUGS (1)
  1. TOPIRAMATE. [Suspect]
     Active Substance: TOPIRAMATE
     Indication: MIGRAINE
     Route: 048
     Dates: start: 20180503

REACTIONS (4)
  - Bladder dilatation [Recovered/Resolved]
  - Bladder discomfort [Recovered/Resolved]
  - Peripheral swelling [Recovered/Resolved]
  - Bladder pain [Recovered/Resolved]

NARRATIVE: CASE EVENT DATE: 20180503
